FAERS Safety Report 10285473 (Version 2)
Quarter: 2014Q3

REPORT INFORMATION
  Report Type: Spontaneous
  Country: FI (occurrence: FI)
  Receive Date: 20140709
  Receipt Date: 20140709
  Transmission Date: 20150326
  Serious: Yes (Other)
  Sender: FDA-Public Use
  Company Number: FI-ROCHE-1408467

PATIENT
  Age: 41 Year
  Sex: Female
  Weight: 64 kg

DRUGS (9)
  1. FOLIC ACID. [Concomitant]
     Active Substance: FOLIC ACID
     Route: 065
  2. BURANA [Concomitant]
     Active Substance: IBUPROFEN
     Dosage: FOR NIGHT
     Route: 065
     Dates: start: 20140520
  3. BURANA [Concomitant]
     Active Substance: IBUPROFEN
     Dosage: 1 - 2 TIMES DAILY
     Route: 065
     Dates: start: 20140520
  4. MABTHERA [Suspect]
     Active Substance: RITUXIMAB
     Indication: RHEUMATOID ARTHRITIS
     Route: 042
     Dates: start: 20140519
  5. MELOXICAM. [Concomitant]
     Active Substance: MELOXICAM
     Dosage: 1 - 3 TIMES DAILY
     Route: 065
  6. METOJECT [Concomitant]
     Active Substance: METHOTREXATE SODIUM
     Route: 065
     Dates: start: 20140520
  7. QUETIAPINE [Concomitant]
     Active Substance: QUETIAPINE
     Route: 065
  8. OXIKLORIN [Concomitant]
     Active Substance: HYDROXYCHLOROQUINE SULFATE
     Route: 065
  9. CIPRALEX [Concomitant]
     Active Substance: ESCITALOPRAM OXALATE
     Route: 065

REACTIONS (8)
  - Rash [Recovering/Resolving]
  - Rash [Recovered/Resolved]
  - Anaphylactic reaction [Recovered/Resolved]
  - Throat irritation [Recovered/Resolved]
  - Epicondylitis [Unknown]
  - Erythema [Recovered/Resolved]
  - Nasal congestion [Recovered/Resolved]
  - Ear discomfort [Recovered/Resolved]

NARRATIVE: CASE EVENT DATE: 20140519
